FAERS Safety Report 12884500 (Version 1)
Quarter: 2016Q4

REPORT INFORMATION
  Report Type: Report from Study
  Country: None (occurrence: DE)
  Receive Date: 20161026
  Receipt Date: 20161026
  Transmission Date: 20170207
  Serious: Yes (Hospitalization)
  Sender: FDA-Public Use
  Company Number: DE-ABBVIE-16K-062-1758538-00

PATIENT
  Age: 48 Year
  Sex: Female

DRUGS (1)
  1. HUMIRA [Suspect]
     Active Substance: ADALIMUMAB
     Indication: PRODUCT USED FOR UNKNOWN INDICATION
     Route: 058
     Dates: start: 20141014

REACTIONS (4)
  - Basedow^s disease [Unknown]
  - Primary hyperthyroidism [Unknown]
  - Goitre [Unknown]
  - Toxic nodular goitre [Unknown]

NARRATIVE: CASE EVENT DATE: 20160518
